FAERS Safety Report 10733435 (Version 2)
Quarter: 2016Q1

REPORT INFORMATION
  Report Type: Spontaneous
  Country: US (occurrence: US)
  Receive Date: 20150123
  Receipt Date: 20160318
  Transmission Date: 20160525
  Serious: Yes (Hospitalization, Other)
  Sender: FDA-Public Use
  Company Number: US-MYLANLABS-2015M1001135

PATIENT

DRUGS (31)
  1. METHYLPREDNISOLONE. [Suspect]
     Active Substance: METHYLPREDNISOLONE
     Route: 042
     Dates: start: 20140307
  2. PANTOPRAZOLE [Concomitant]
     Active Substance: PANTOPRAZOLE SODIUM
     Route: 048
  3. CARVEDILOL. [Concomitant]
     Active Substance: CARVEDILOL
     Route: 048
  4. METHYLPREDNISOLONE. [Suspect]
     Active Substance: METHYLPREDNISOLONE
     Indication: GRAFT VERSUS HOST DISEASE IN GASTROINTESTINAL TRACT
     Route: 042
     Dates: start: 20140307
  5. DAPSONE. [Concomitant]
     Active Substance: DAPSONE
     Dosage: 100 MG DAILY
     Route: 048
  6. PREGABALIN. [Concomitant]
     Active Substance: PREGABALIN
     Route: 048
  7. OXYCODONE [Concomitant]
     Active Substance: OXYCODONE
     Indication: PAIN
     Dosage: SUSTAINED-RELEASE 120 MG EVERY 12 HOURS
     Route: 048
  8. ACICLOVIR [Concomitant]
     Active Substance: ACYCLOVIR
     Route: 042
  9. AMLODIPINE [Suspect]
     Active Substance: AMLODIPINE BESYLATE
     Indication: HYPERTENSION
     Dosage: 5 MG DAILY
     Route: 048
     Dates: start: 20140310, end: 20140322
  10. ONDANSETRON [Suspect]
     Active Substance: ONDANSETRON
     Indication: PRODUCT USED FOR UNKNOWN INDICATION
     Route: 065
     Dates: start: 20140311, end: 20140312
  11. LEVOFLOXACIN. [Concomitant]
     Active Substance: LEVOFLOXACIN
     Dosage: 500 MG DAILY
     Route: 042
  12. INSULIN DETEMIR [Concomitant]
     Active Substance: INSULIN DETEMIR
     Dosage: 15 UNITS EVERY NIGHT
     Route: 058
  13. INSULIN DETEMIR [Concomitant]
     Active Substance: INSULIN DETEMIR
     Dosage: 50 UNITS EVERY 12 HOURS
     Route: 058
  14. INSULIN LISPRO [Concomitant]
     Active Substance: INSULIN LISPRO
     Dosage: SLIDING SCALE 3 TIMES DAILY BEFORE EVERY MEAL
     Route: 058
  15. INSULIN LISPRO [Concomitant]
     Active Substance: INSULIN LISPRO
     Dosage: SLIDING SCALE 3 TIMES DAILY BEFORE A MEAL
     Route: 058
  16. LORAZEPAM. [Concomitant]
     Active Substance: LORAZEPAM
     Dosage: 0.5 MG EVERY 6 HOURS PRN
     Route: 048
  17. TACROLIMUS. [Suspect]
     Active Substance: TACROLIMUS
     Dosage: 2 MG CONTINUOUS IV INFUSION EVERY 24 HOURS
     Route: 041
  18. PREDNISONE. [Suspect]
     Active Substance: PREDNISONE
     Indication: GRAFT VERSUS HOST DISEASE
     Dosage: DECREASED TO 15 MG DAILY
     Route: 048
     Dates: end: 20140307
  19. CASPOFUNGIN [Concomitant]
     Active Substance: CASPOFUNGIN
     Dosage: 50 MG DAILY
     Route: 042
  20. LEVOFLOXACIN. [Concomitant]
     Active Substance: LEVOFLOXACIN
     Dosage: 500 MG DAILY
     Route: 048
  21. PROMETHAZINE [Concomitant]
     Active Substance: PROMETHAZINE\PROMETHAZINE HYDROCHLORIDE
     Dosage: 12.5 MG EVERY 6 HOURS PRN
     Route: 048
  22. LORAZEPAM. [Concomitant]
     Active Substance: LORAZEPAM
     Dosage: 0.5 MG EVERY 6 HOURS PRN
     Route: 042
  23. VALACICLOVIR [Concomitant]
     Active Substance: VALACYCLOVIR HYDROCHLORIDE
     Dosage: 500 MG DAILY
     Route: 048
  24. METFORMIN [Concomitant]
     Active Substance: METFORMIN HYDROCHLORIDE
     Route: 048
  25. BUPROPION. [Concomitant]
     Active Substance: BUPROPION
     Route: 048
  26. OXYCODONE [Concomitant]
     Active Substance: OXYCODONE
     Dosage: IMMEDIATE-RELEASE 30 MG EVERY 4 HOURS PRN
     Route: 048
  27. PROMETHAZINE [Concomitant]
     Active Substance: PROMETHAZINE\PROMETHAZINE HYDROCHLORIDE
     Dosage: 12.5 MG EVERY 6 HOURS PRN
     Route: 042
  28. BUDESONIDE. [Suspect]
     Active Substance: BUDESONIDE
     Indication: PRODUCT USED FOR UNKNOWN INDICATION
     Route: 048
  29. TACROLIMUS. [Suspect]
     Active Substance: TACROLIMUS
     Indication: PRODUCT USED FOR UNKNOWN INDICATION
     Route: 048
  30. PANTOPRAZOLE [Concomitant]
     Active Substance: PANTOPRAZOLE SODIUM
     Route: 042
  31. HYDROMORPHONE [Concomitant]
     Active Substance: HYDROMORPHONE
     Indication: PAIN
     Dosage: 2 MG EVERY 4 HOURS PRN
     Route: 042

REACTIONS (4)
  - Hypertension [Recovered/Resolved]
  - Headache [Unknown]
  - Type 1 diabetes mellitus [Unknown]
  - Drug-induced liver injury [Recovered/Resolved]
